FAERS Safety Report 22110082 (Version 1)
Quarter: 2023Q1

REPORT INFORMATION
  Report Type: Spontaneous
  Country: CA (occurrence: CA)
  Receive Date: 20230317
  Receipt Date: 20230317
  Transmission Date: 20230417
  Serious: Yes (Other)
  Sender: FDA-Public Use
  Company Number: CA-SAMSUNG BIOEPIS-SB-2023-07061

PATIENT
  Age: 66 Year
  Sex: Male
  Weight: 75 kg

DRUGS (2)
  1. INFLIXIMAB [Suspect]
     Active Substance: INFLIXIMAB
     Indication: Colitis ulcerative
     Route: 042
  2. INFLIXIMAB [Suspect]
     Active Substance: INFLIXIMAB
     Route: 042

REACTIONS (5)
  - Gait inability [Unknown]
  - Knee operation [Unknown]
  - Inappropriate schedule of product administration [Unknown]
  - Intentional product use issue [Unknown]
  - Off label use [Unknown]
